FAERS Safety Report 6503519-2 (Version None)
Quarter: 2009Q4

REPORT INFORMATION
  Report Type: 
  Country: None (occurrence: None)
  Receive Date: 20091217
  Receipt Date: 20091211
  Transmission Date: 20100525
  Serious: No
  Sender: FDA-Public Use
  Company Number: US-B.I. PHARMACEUTICALS,INC./RIDGEFIELD-2009-BP-14325BP

PATIENT
  Age: 80 Year

DRUGS (1)
  1. COMBIVENT [Suspect]
     Dosage: 8 PUF

REACTIONS (1)
  - PNEUMONIA [None]
